FAERS Safety Report 7086410-5 (Version None)
Quarter: 2010Q4

REPORT INFORMATION
  Report Type: 
  Country: None (occurrence: None)
  Receive Date: 20101028
  Receipt Date: 20101013
  Transmission Date: 20110411
  Serious: Yes (Life-Threatening)
  Sender: FDA-Public Use
  Company Number: 011421

PATIENT
  Age: 4 Year
  Sex: Female

DRUGS (5)
  1. BUSULFEX [Suspect]
     Indication: STEM CELL TRANSPLANT
     Dosage: 24 MG, QID, INTRAVENOUS
     Route: 042
     Dates: start: 20090821, end: 20090824
  2. FLUDARABINE PHOSPHATE [Concomitant]
  3. MELPHALAN HYDROCHLORIDE [Concomitant]
  4. TACROLIMUS [Concomitant]
  5. METHOTREXATE [Concomitant]

REACTIONS (3)
  - NECROTISING COLITIS [None]
  - THROMBOTIC MICROANGIOPATHY [None]
  - VENOOCCLUSIVE LIVER DISEASE [None]
